FAERS Safety Report 20580130 (Version 3)
Quarter: 2023Q4

REPORT INFORMATION
  Report Type: Spontaneous
  Country: US (occurrence: US)
  Receive Date: 20220310
  Receipt Date: 20231211
  Transmission Date: 20240110
  Serious: Yes (Death, Hospitalization, Other)
  Sender: FDA-Public Use
  Company Number: US-GILEAD-2022-0572993

PATIENT
  Age: 68 Year
  Sex: Female

DRUGS (5)
  1. VIREAD [Suspect]
     Active Substance: TENOFOVIR DISOPROXIL FUMARATE
     Indication: HIV infection
     Dosage: UNK
     Route: 048
     Dates: start: 2001
  2. VIREAD [Suspect]
     Active Substance: TENOFOVIR DISOPROXIL FUMARATE
     Dosage: UNK
     Route: 048
     Dates: start: 200303, end: 201811
  3. ZIAGEN [Concomitant]
     Active Substance: ABACAVIR SULFATE
  4. KALETRA [Concomitant]
     Active Substance: LOPINAVIR\RITONAVIR
  5. TIVICAY [Concomitant]
     Active Substance: DOLUTEGRAVIR SODIUM
     Dosage: UNK

REACTIONS (12)
  - Death [Fatal]
  - End stage renal disease [Fatal]
  - Tibia fracture [Recovered/Resolved]
  - Osteoporosis [Not Recovered/Not Resolved]
  - Lower limb fracture [Recovered/Resolved]
  - Upper limb fracture [Recovered/Resolved]
  - Pain [Unknown]
  - Emotional distress [Unknown]
  - Anxiety [Unknown]
  - Anhedonia [Unknown]
  - Injury [Unknown]
  - Osteopenia [Unknown]

NARRATIVE: CASE EVENT DATE: 20030201
